FAERS Safety Report 9358147 (Version 1)
Quarter: 2013Q2

REPORT INFORMATION
  Report Type: Spontaneous
  Country: US (occurrence: US)
  Receive Date: 20130620
  Receipt Date: 20130620
  Transmission Date: 20140414
  Serious: Yes (Hospitalization)
  Sender: FDA-Public Use
  Company Number: US-US-EMD SERONO, INC.-232455J10USA

PATIENT
  Age: 37 Year
  Sex: Female

DRUGS (2)
  1. REBIF [Suspect]
     Indication: MULTIPLE SCLEROSIS
     Route: 058
     Dates: start: 20090119
  2. REBIF [Suspect]
     Route: 058

REACTIONS (3)
  - Multiple sclerosis relapse [Recovering/Resolving]
  - Influenza like illness [Unknown]
  - Injection site reaction [Unknown]
